FAERS Safety Report 5374285-1 (Version None)
Quarter: 2007Q2

REPORT INFORMATION
  Report Type: 
  Country: None (occurrence: None)
  Receive Date: 20070629
  Receipt Date: 20070223
  Transmission Date: 20071010
  Serious: Yes (Hospitalization, Disabling)
  Sender: FDA-Public Use
  Company Number: US-ROCHE-314899

PATIENT
  Age: 40 Year
  Sex: Female

DRUGS (3)
  1. LARIAM [Suspect]
     Indication: MALARIA PROPHYLAXIS
     Dosage: EVERY WEEK.
     Route: 048
     Dates: start: 20010829, end: 20010906
  2. VALIUM [Suspect]
     Indication: DRUG USE FOR UNKNOWN INDICATION
     Route: 042
     Dates: start: 20010909, end: 20010909
  3. PROZAC [Concomitant]
     Indication: DEPRESSION
     Route: 048
     Dates: start: 19910615

REACTIONS (24)
  - AGGRESSION [None]
  - AGITATION [None]
  - ANTISOCIAL BEHAVIOUR [None]
  - BLOOD POTASSIUM DECREASED [None]
  - CONFUSIONAL STATE [None]
  - CONVULSION [None]
  - DELUSION [None]
  - DEPRESSION [None]
  - DISORIENTATION [None]
  - DRUG INEFFECTIVE [None]
  - FATIGUE [None]
  - GAIT DISTURBANCE [None]
  - HALLUCINATION [None]
  - HEADACHE [None]
  - HOSTILITY [None]
  - INCONTINENCE [None]
  - LOSS OF LIBIDO [None]
  - MANIA [None]
  - MEMORY IMPAIRMENT [None]
  - MUSCLE RIGIDITY [None]
  - PARANOIA [None]
  - PSYCHOTIC DISORDER [None]
  - PYREXIA [None]
  - SPEECH DISORDER [None]
